FAERS Safety Report 20460082 (Version 1)
Quarter: 2022Q1

REPORT INFORMATION
  Report Type: Report from Study
  Country: US (occurrence: None)
  Receive Date: 20220211
  Receipt Date: 20220211
  Transmission Date: 20220423
  Serious: Yes (Hospitalization)
  Sender: FDA-Public Use
  Company Number: US-ROCHE-3016969

PATIENT
  Age: 80 Year
  Sex: Male
  Weight: 73.8 kg

DRUGS (13)
  1. ATEZOLIZUMAB [Suspect]
     Active Substance: ATEZOLIZUMAB
     Indication: Colon cancer stage III
     Dosage: LAST ADMINISTERED DATE 11/AUG/2021
     Route: 041
     Dates: start: 20210811
  2. FLUOROURACIL [Suspect]
     Active Substance: FLUOROURACIL
     Indication: Colon cancer stage III
     Dosage: LAST ADMINISTERED DATE 11/AUG/2021
     Route: 065
     Dates: start: 20210811
  3. LEUCOVORIN [Suspect]
     Active Substance: LEUCOVORIN
     Indication: Colon cancer stage III
     Dosage: LAST ADMINISTERED DATE 11/AUG/2021
     Route: 065
     Dates: start: 20210811
  4. OXALIPLATIN [Suspect]
     Active Substance: OXALIPLATIN
     Indication: Colon cancer stage III
     Dosage: LAST ADMINISTERED DATE 11/AUG/2021
     Route: 065
     Dates: start: 20210811
  5. HYDROCHLOROTHIAZIDE [Concomitant]
     Active Substance: HYDROCHLOROTHIAZIDE
  6. IRBESARTAN [Concomitant]
     Active Substance: IRBESARTAN
  7. MEGACE [Concomitant]
     Active Substance: MEGESTROL ACETATE
  8. METOPROLOL [Concomitant]
     Active Substance: METOPROLOL
  9. NOVOLOG [Concomitant]
     Active Substance: INSULIN ASPART
  10. OZEMPIC [Concomitant]
     Active Substance: SEMAGLUTIDE
  11. ASPIRIN [Concomitant]
     Active Substance: ASPIRIN
  12. CLONIDINE [Concomitant]
     Active Substance: CLONIDINE
  13. CRESTOR [Concomitant]
     Active Substance: ROSUVASTATIN CALCIUM

REACTIONS (3)
  - Syncope [Recovering/Resolving]
  - Subarachnoid haemorrhage [Recovering/Resolving]
  - Fall [Recovering/Resolving]

NARRATIVE: CASE EVENT DATE: 20210815
